FAERS Safety Report 15348015 (Version 1)
Quarter: 2018Q3

REPORT INFORMATION
  Report Type: Spontaneous
  Country: US (occurrence: US)
  Receive Date: 20180904
  Receipt Date: 20180904
  Transmission Date: 20181010
  Serious: No
  Sender: FDA-Public Use
  Company Number: US-SUNOVION-2018SUN003315

PATIENT
  Age: 63 Year
  Sex: Female

DRUGS (2)
  1. LATUDA [Suspect]
     Active Substance: LURASIDONE HYDROCHLORIDE
     Indication: BIPOLAR DISORDER
     Dosage: 40 MG, UNK
     Route: 048
     Dates: start: 2017, end: 2018
  2. INGREZZA [Suspect]
     Active Substance: VALBENAZINE
     Dosage: UNK

REACTIONS (3)
  - Tardive dyskinesia [Recovering/Resolving]
  - Extrapyramidal disorder [Unknown]
  - Depression [Unknown]
